FAERS Safety Report 18400655 (Version 1)
Quarter: 2020Q4

REPORT INFORMATION
  Report Type: Report from Study
  Country: US (occurrence: US)
  Receive Date: 20201019
  Receipt Date: 20201019
  Transmission Date: 20210114
  Serious: Yes (Hospitalization)
  Sender: FDA-Public Use
  Company Number: US-INCYTE CORPORATION-2020IN009681

PATIENT

DRUGS (1)
  1. JAKAFI [Suspect]
     Active Substance: RUXOLITINIB
     Indication: MYELOPROLIFERATIVE NEOPLASM
     Dosage: 20 MILLIGRAM M-W-F AFTER DIALYSIS
     Route: 048
     Dates: start: 20200203

REACTIONS (2)
  - Nervous system disorder [Unknown]
  - Off label use [Unknown]

NARRATIVE: CASE EVENT DATE: 20200302
